FAERS Safety Report 8936906 (Version 3)
Quarter: 2014Q2

REPORT INFORMATION
  Report Type: Spontaneous
  Country: PT (occurrence: PT)
  Receive Date: 20121130
  Receipt Date: 20131028
  Transmission Date: 20141212
  Serious: Yes (Death, Other)
  Sender: FDA-Public Use
  Company Number: PT-PFIZER INC-2012298760

PATIENT
  Age: 32 Year
  Sex: Male

DRUGS (9)
  1. HALOPERIDOL [Suspect]
     Indication: PSYCHOTIC DISORDER
     Dosage: UNK
  2. OLANZAPINE [Suspect]
     Indication: PSYCHOTIC DISORDER
     Dosage: UNK
  3. QUETIAPINE FUMARATE [Suspect]
     Indication: PSYCHOTIC DISORDER
     Dosage: UNK
  4. PAROXETINE [Suspect]
     Indication: ANTIDEPRESSANT THERAPY
     Dosage: UNK
  5. FLUOXETINE HCL [Suspect]
     Indication: ANTIDEPRESSANT THERAPY
     Dosage: UNK
  6. LORAZEPAM [Suspect]
     Indication: ANXIOLYTIC THERAPY
     Dosage: UNK
  7. BROMAZEPAM [Suspect]
     Indication: ANXIOLYTIC THERAPY
     Dosage: UNK
  8. DIAZEPAM [Concomitant]
     Dosage: UNK
  9. RISPERIDONE [Concomitant]
     Dosage: UNK

REACTIONS (5)
  - Completed suicide [Fatal]
  - Toxicity to various agents [Fatal]
  - Intentional overdose [Fatal]
  - Visceral congestion [Fatal]
  - Acute pulmonary oedema [Fatal]
